FAERS Safety Report 5355630-X (Version None)
Quarter: 2007Q2

REPORT INFORMATION
  Report Type: 
  Country: None (occurrence: None)
  Receive Date: 20070613
  Receipt Date: 20070531
  Transmission Date: 20071010
  Serious: Yes (Congenital Anomaly, Other)
  Sender: FDA-Public Use
  Company Number: B0474816A

PATIENT

DRUGS (1)
  1. SERETIDE [Suspect]
     Indication: ASTHMA

REACTIONS (2)
  - DRUG EXPOSURE DURING PREGNANCY [None]
  - RENAL DISORDER [None]
